FAERS Safety Report 17458186 (Version 1)
Quarter: 2020Q1

REPORT INFORMATION
  Report Type: Spontaneous
  Country: US (occurrence: US)
  Receive Date: 20200225
  Receipt Date: 20200225
  Transmission Date: 20200409
  Serious: Yes (Hospitalization)
  Sender: FDA-Public Use
  Company Number: US-BAYER-2019-070929

PATIENT
  Age: 61 Year
  Sex: Male

DRUGS (4)
  1. XARELTO [Suspect]
     Active Substance: RIVAROXABAN
     Indication: THROMBOSIS
     Dosage: UNK
     Route: 048
     Dates: start: 20170519, end: 201706
  2. BRILINTA [Suspect]
     Active Substance: TICAGRELOR
     Indication: CORONARY ARTERY DISEASE
     Dosage: UNK
  3. BAYER LOW DOSE [Suspect]
     Active Substance: ASPIRIN
     Indication: CORONARY ARTERY DISEASE
     Dosage: 81 MG, QD
     Route: 048
  4. BRILINTA [Suspect]
     Active Substance: TICAGRELOR
     Indication: ANTIPLATELET THERAPY

REACTIONS (5)
  - Renal haemorrhage [Unknown]
  - Acute kidney injury [Unknown]
  - Perirenal haematoma [Unknown]
  - Shock haemorrhagic [Recovered/Resolved]
  - Retroperitoneal haematoma [Unknown]

NARRATIVE: CASE EVENT DATE: 201706
